FAERS Safety Report 6649441-2 (Version None)
Quarter: 2010Q1

REPORT INFORMATION
  Report Type: 
  Country: None (occurrence: None)
  Receive Date: 20100324
  Receipt Date: 20100309
  Transmission Date: 20100710
  Serious: Yes (Other)
  Sender: FDA-Public Use
  Company Number: CA-JNJFOC-20100205253

PATIENT
  Sex: Female
  Weight: 160 kg

DRUGS (3)
  1. STELARA [Suspect]
     Indication: PSORIASIS
     Route: 058
  2. HUMALOG [Concomitant]
     Route: 058
  3. HUMULIN INSULIN [Concomitant]
     Indication: DIABETES MELLITUS
     Route: 058

REACTIONS (8)
  - ANGIOEDEMA [None]
  - ARTHRALGIA [None]
  - BACK PAIN [None]
  - HEADACHE [None]
  - HYPERSENSITIVITY [None]
  - LARYNGEAL OEDEMA [None]
  - MYALGIA [None]
  - PAIN IN EXTREMITY [None]
